FAERS Safety Report 24666533 (Version 1)
Quarter: 2024Q4

REPORT INFORMATION
  Report Type: Spontaneous
  Country: US (occurrence: US)
  Receive Date: 20241126
  Receipt Date: 20241126
  Transmission Date: 20250115
  Serious: No
  Sender: SANOFI AVENTIS
  Company Number: US-SA-2024SA342853

PATIENT
  Age: 3 Year
  Sex: Female
  Weight: 15.91 kg

DRUGS (6)
  1. DUPIXENT [Suspect]
     Active Substance: DUPILUMAB
     Indication: Dermatitis atopic
     Dosage: 300 MG, Q4W
     Route: 058
     Dates: start: 20241114
  2. PREDNISONE [Concomitant]
     Active Substance: PREDNISONE
  3. CLOBETASOL PROPIONATE [Concomitant]
     Active Substance: CLOBETASOL PROPIONATE
  4. TRIAMCINOLONE ACETONIDE [Concomitant]
     Active Substance: TRIAMCINOLONE ACETONIDE
  5. AQUAPHOR [Concomitant]
     Active Substance: PETROLATUM
  6. CHILDREN^S ALL DAY ALLERGY [Concomitant]

REACTIONS (3)
  - Blister [Unknown]
  - Condition aggravated [Unknown]
  - Scratch [Unknown]

NARRATIVE: CASE EVENT DATE: 20241114
